FAERS Safety Report 7406148-1 (Version None)
Quarter: 2011Q2

REPORT INFORMATION
  Report Type: 
  Country: None (occurrence: None)
  Receive Date: 20110411
  Receipt Date: 20110328
  Transmission Date: 20111010
  Serious: Yes (Other)
  Sender: FDA-Public Use
  Company Number: US-AMGEN-USASP2011016434

PATIENT
  Age: 74 Year
  Sex: Male
  Weight: 109.75 kg

DRUGS (1)
  1. VECTIBIX [Suspect]
     Indication: COLORECTAL CANCER METASTATIC
     Dosage: 600 MG, Q2WK
     Dates: start: 20110308

REACTIONS (1)
  - HYPOMAGNESAEMIA [None]
